FAERS Safety Report 7520352-3 (Version None)
Quarter: 2011Q2

REPORT INFORMATION
  Report Type: 
  Country: None (occurrence: None)
  Receive Date: 20110602
  Receipt Date: 20101012
  Transmission Date: 20111010
  Serious: No
  Sender: FDA-Public Use
  Company Number: US-BAYER-201036700NA

PATIENT
  Age: 40 Year
  Sex: Female

DRUGS (5)
  1. LEXAPRO [Concomitant]
  2. AVELOX [Suspect]
     Indication: UPPER RESPIRATORY TRACT INFECTION
     Dosage: 400 MG, UNK
     Route: 048
     Dates: start: 20101011, end: 20101011
  3. ORTHO TRI-CYCLEN LO [Concomitant]
  4. AVELOX [Suspect]
     Indication: SINUSITIS
  5. ALLEGRA [Concomitant]

REACTIONS (6)
  - FEELING COLD [None]
  - PALPITATIONS [None]
  - HYPERHIDROSIS [None]
  - NAUSEA [None]
  - DIZZINESS [None]
  - PANIC ATTACK [None]
